FAERS Safety Report 6983914-8 (Version None)
Quarter: 2010Q3

REPORT INFORMATION
  Report Type: 
  Country: None (occurrence: None)
  Receive Date: 20100914
  Receipt Date: 20090420
  Transmission Date: 20110219
  Serious: No
  Sender: FDA-Public Use
  Company Number: US-WYE-H09039809

PATIENT
  Age: 56 Year
  Sex: Male
  Weight: 77.18 kg

DRUGS (6)
  1. ADVIL LIQUI-GELS [Suspect]
     Indication: INFLAMMATION
     Route: 048
     Dates: start: 20090402
  2. NASACORT [Concomitant]
  3. XYZAL [Concomitant]
  4. ACETYLSALICYLIC ACID [Concomitant]
  5. TAMBOCOR [Concomitant]
  6. FLOMAX [Concomitant]

REACTIONS (3)
  - DRUG WITHDRAWAL SYNDROME [None]
  - HEADACHE [None]
  - OVERDOSE [None]
